FAERS Safety Report 24834348 (Version 1)
Quarter: 2025Q1

REPORT INFORMATION
  Report Type: Spontaneous
  Country: US (occurrence: None)
  Receive Date: 20250110
  Receipt Date: 20250110
  Transmission Date: 20250409
  Serious: Yes (Other)
  Sender: FDA-CTU
  Company Number: None

PATIENT
  Age: 75 Year
  Sex: Female

DRUGS (1)
  1. LENALIDOMIDE [Suspect]
     Active Substance: LENALIDOMIDE
     Indication: 5q minus syndrome
     Dosage: FREQUENCY : DAILY;?
     Route: 048
     Dates: start: 20241115

REACTIONS (2)
  - Thrombocytosis [None]
  - Therapy change [None]

NARRATIVE: CASE EVENT DATE: 20250108
